FAERS Safety Report 7928536-7 (Version None)
Quarter: 2011Q4

REPORT INFORMATION
  Report Type: 
  Country: None (occurrence: None)
  Receive Date: 20111118
  Receipt Date: 20111109
  Transmission Date: 20120403
  Serious: Yes (Other)
  Sender: FDA-Public Use
  Company Number: JP-BRISTOL-MYERS SQUIBB COMPANY-16231896

PATIENT
  Age: 63 Year
  Sex: Male

DRUGS (4)
  1. GLUCOBAY [Concomitant]
  2. LIPITOR [Concomitant]
     Route: 048
  3. METFORMIN HCL [Suspect]
     Indication: DIABETES MELLITUS
     Route: 048
  4. OLMESARTAN MEDOXOMIL [Concomitant]
     Route: 048

REACTIONS (1)
  - HAEMATOCHEZIA [None]
